FAERS Safety Report 8283898-9 (Version None)
Quarter: 2012Q2

REPORT INFORMATION
  Report Type: 
  Country: None (occurrence: None)
  Receive Date: 20120413
  Receipt Date: 20120403
  Transmission Date: 20120825
  Serious: Yes (Hospitalization)
  Sender: FDA-Public Use
  Company Number: US-ELI_LILLY_AND_COMPANY-US200901001362

PATIENT
  Sex: Female
  Weight: 79.365 kg

DRUGS (4)
  1. BYETTA [Suspect]
     Indication: TYPE 2 DIABETES MELLITUS
     Dosage: 5 UG, BID
     Route: 058
  2. PERCOCET [Concomitant]
     Indication: SCIATICA
     Dosage: 2 D/F, AS NEEDED
  3. GLUCOPHAGE [Concomitant]
     Indication: TYPE 2 DIABETES MELLITUS
     Dosage: UNK
  4. BYETTA [Suspect]
     Dosage: 10 UG, 2/D
     Route: 058
     Dates: start: 20050101, end: 20090101

REACTIONS (10)
  - SCIATICA [None]
  - DECREASED APPETITE [None]
  - NAUSEA [None]
  - INTERVERTEBRAL DISC PROTRUSION [None]
  - BACK PAIN [None]
  - BLOOD GLUCOSE DECREASED [None]
  - WEIGHT DECREASED [None]
  - FEELING ABNORMAL [None]
  - ABDOMINAL DISTENSION [None]
  - DYSPEPSIA [None]
